FAERS Safety Report 9596547 (Version 3)
Quarter: 2013Q4

REPORT INFORMATION
  Report Type: Report from Study
  Country: PL (occurrence: PL)
  Receive Date: 20131004
  Receipt Date: 20131107
  Transmission Date: 20140711
  Serious: Yes (Hospitalization)
  Sender: FDA-Public Use
  Company Number: PL-UCBSA-099106

PATIENT
  Age: 30 Year
  Sex: Male
  Weight: 85.5 kg

DRUGS (2)
  1. CERTOLIZUMAB PEGOL [Suspect]
     Indication: PSORIATIC ARTHROPATHY
     Dosage: NO. OF DOSES RECEIVED:APPROXIMATELY 66
     Route: 058
     Dates: start: 20110107, end: 20130926
  2. ASPICAM [Concomitant]
     Indication: PSORIATIC ARTHROPATHY
     Route: 048
     Dates: start: 20101110

REACTIONS (1)
  - Pancreatitis acute [Recovering/Resolving]
